FAERS Safety Report 16438673 (Version 1)
Quarter: 2019Q2

REPORT INFORMATION
  Report Type: Spontaneous
  Country: JP (occurrence: JP)
  Receive Date: 20190617
  Receipt Date: 20190617
  Transmission Date: 20190711
  Serious: Yes (Hospitalization, Other)
  Sender: FDA-Public Use
  Company Number: JP-ACTELION-A-CH2019-191632

PATIENT
  Age: 12 Year
  Sex: Male

DRUGS (1)
  1. BOSENTAN. [Suspect]
     Active Substance: BOSENTAN
     Indication: HEART DISEASE CONGENITAL
     Route: 048

REACTIONS (8)
  - Drug ineffective [Unknown]
  - Gallbladder disorder [Unknown]
  - Intestinal malrotation [Unknown]
  - Laparotomy [Unknown]
  - Asplenia [Unknown]
  - Gastroenterostomy [Unknown]
  - Intestinal obstruction [Unknown]
  - Hepatic cirrhosis [Unknown]
